FAERS Safety Report 5746155-8 (Version None)
Quarter: 2008Q2

REPORT INFORMATION
  Report Type: 
  Country: None (occurrence: None)
  Receive Date: 20080522
  Receipt Date: 20080507
  Transmission Date: 20081010
  Serious: Yes (Death, Other)
  Sender: FDA-Public Use
  Company Number: JP-BAYER-200818371GPV

PATIENT

DRUGS (14)
  1. FLUDARABINE PHOSPHATE [Suspect]
     Indication: BONE MARROW CONDITIONING REGIMEN
     Route: 065
  2. FLUDARABINE PHOSPHATE [Suspect]
     Route: 065
  3. MELPHALAN [Suspect]
     Indication: BONE MARROW CONDITIONING REGIMEN
     Route: 065
  4. BUSULFAN [Concomitant]
     Indication: BONE MARROW CONDITIONING REGIMEN
     Route: 065
  5. THIOTEPA [Concomitant]
     Indication: BONE MARROW CONDITIONING REGIMEN
     Route: 065
  6. VALPROATE SODIUM [Concomitant]
     Indication: DRUG USE FOR UNKNOWN INDICATION
     Route: 065
  7. CYCLOSPORINE [Concomitant]
     Indication: IMMUNOSUPPRESSION
     Route: 065
  8. TACROLIMUS [Concomitant]
     Indication: IMMUNOSUPPRESSION
     Route: 065
  9. FLUORQUINOLONE [Concomitant]
     Indication: ANTIBIOTIC PROPHYLAXIS
     Route: 065
  10. FLUCONAZOLE [Concomitant]
     Indication: PROPHYLAXIS
     Route: 065
  11. ACYCLOVIR SODIUM [Concomitant]
     Indication: PROPHYLAXIS
     Route: 065
  12. GANCICLOVIR [Concomitant]
     Indication: CYTOMEGALOVIRUS INFECTION
     Route: 065
  13. FOSCARNET [Concomitant]
     Indication: CYTOMEGALOVIRUS INFECTION
     Route: 065
  14. TRIMETHOPRIM-SULFAMETOXAZOLE [Concomitant]
     Indication: ANTIFUNGAL PROPHYLAXIS
     Route: 065

REACTIONS (8)
  - ACUTE GRAFT VERSUS HOST DISEASE [None]
  - CHRONIC GRAFT VERSUS HOST DISEASE [None]
  - IMMUNE SYSTEM DISORDER [None]
  - INFECTION [None]
  - INTERSTITIAL LUNG DISEASE [None]
  - NERVOUS SYSTEM DISORDER [None]
  - THERAPEUTIC AGENT TOXICITY [None]
  - THROMBOTIC MICROANGIOPATHY [None]
